FAERS Safety Report 9842672 (Version 1)
Quarter: 2014Q1

REPORT INFORMATION
  Report Type: Spontaneous
  Country: CH (occurrence: CH)
  Receive Date: 20140124
  Receipt Date: 20140124
  Transmission Date: 20141002
  Serious: Yes (Hospitalization)
  Sender: FDA-Public Use
  Company Number: CH-009507513-1401CHE010545

PATIENT
  Age: 60 Year
  Sex: Male

DRUGS (56)
  1. IVEMEND [Suspect]
     Indication: NAUSEA
     Dosage: 125 MG, QD
     Route: 041
     Dates: start: 20131119, end: 20131128
  2. IVEMEND [Suspect]
     Indication: VOMITING
     Dosage: 125 MG, UNK
     Route: 041
     Dates: start: 20131119, end: 20131119
  3. IVEMEND [Suspect]
     Dosage: 80 MG, UNK
     Route: 041
     Dates: start: 20131120, end: 20131128
  4. ENDOXAN [Suspect]
     Indication: PROPHYLAXIS
     Dosage: 5160 MG, QD
     Route: 041
     Dates: start: 20131119, end: 20131120
  5. BUSULFAN [Suspect]
     Indication: PROPHYLAXIS
     Dosage: 69 MG IV 2X
     Route: 041
     Dates: start: 20131121, end: 20131121
  6. BUSULFAN [Suspect]
     Dosage: 69 MG, 4X
     Route: 041
     Dates: start: 20131122, end: 20131124
  7. ATG FRESENIUS [Suspect]
     Indication: PROPHYLAXIS
     Dosage: 500 MG 2 TOTAL.
     Route: 041
     Dates: start: 20131122, end: 20131124
  8. ATG FRESENIUS [Suspect]
     Dosage: ON 22NOV2013 500 MG
     Route: 041
     Dates: start: 20131122, end: 20131122
  9. ATG FRESENIUS [Suspect]
     Dosage: ON 24 NOV 900 MG
     Route: 041
     Dates: start: 20131124, end: 20131124
  10. METHOTREXATE [Suspect]
     Indication: PROPHYLAXIS
     Dosage: 20 MG, 2 PER 0 TOTAL
     Route: 041
     Dates: start: 20131129, end: 20131202
  11. SANDIMMUN [Suspect]
     Indication: PROPHYLAXIS
     Dosage: 250 MG, QD
     Route: 041
     Dates: start: 20131124
  12. SANDIMMUN [Suspect]
     Dosage: 250 MG, UNK
     Route: 041
     Dates: start: 20131124, end: 20131126
  13. SANDIMMUN [Suspect]
     Dosage: 325 MG, UNK
     Route: 041
     Dates: start: 20131127, end: 20131130
  14. SANDIMMUN [Suspect]
     Dosage: 325 MG, UNK
     Route: 041
     Dates: start: 20131201
  15. SOLU-MEDROL [Suspect]
     Indication: PROPHYLAXIS
     Dosage: 80 MG, QD
     Route: 041
     Dates: start: 20131122, end: 20131124
  16. AMIKIN [Suspect]
     Indication: BACTERIAL INFECTION
     Dosage: 500 MG, BID
     Route: 041
     Dates: start: 20131123, end: 20131125
  17. NOPIL [Suspect]
     Indication: PROPHYLAXIS
     Dosage: 1 DF, TIW
     Route: 048
     Dates: start: 201311
  18. CEFEPIME [Suspect]
     Indication: BACTERIAL INFECTION
     Dosage: 2 G, TID
     Dates: start: 20131123, end: 20131129
  19. DIFLUCAN [Suspect]
     Indication: PROPHYLAXIS
     Dosage: 400 MG, QD
     Route: 048
     Dates: start: 201311
  20. VALTREX [Suspect]
     Indication: PROPHYLAXIS
     Dosage: 500 MG, BID
     Route: 048
     Dates: start: 20131118
  21. LASIX (FUROSEMIDE) [Suspect]
     Indication: POLYURIA
     Dosage: 20 MG, QD
     Route: 041
     Dates: start: 20131119, end: 20131201
  22. LASIX (FUROSEMIDE) [Suspect]
     Dosage: 40 MG, UNK
     Route: 041
     Dates: start: 20131204
  23. PANTOZOL [Suspect]
     Indication: PROPHYLAXIS
     Dosage: 40 MG, QD
     Route: 048
     Dates: start: 20131118, end: 20131201
  24. PANTOZOL [Suspect]
     Dosage: 20 MG, QD
     Route: 048
     Dates: start: 20131202
  25. ZYLORIC [Suspect]
     Indication: GOUT
     Dosage: 300 MG, QD
     Route: 048
     Dates: start: 20131118, end: 20131126
  26. ALOXI [Suspect]
     Indication: NAUSEA
     Dosage: 0.25 MG, QD
     Route: 041
     Dates: start: 20131119, end: 20131119
  27. ALOXI [Suspect]
     Indication: VOMITING
  28. UROMITEXAN [Suspect]
     Indication: PROPHYLAXIS
     Dosage: 800 MG, TID
     Route: 041
     Dates: start: 20131119, end: 20131121
  29. UROMITEXAN [Suspect]
     Dosage: 800 MG, BID
     Route: 041
     Dates: start: 20131119, end: 20131120
  30. UROMITEXAN [Suspect]
     Dosage: 400 MG, BID
     Route: 041
     Dates: start: 20131119, end: 20131120
  31. UROMITEXAN [Suspect]
     Dosage: 400 MG, TID
     Route: 041
     Dates: start: 20131121, end: 20131121
  32. MERONEM [Suspect]
     Indication: BACTERIAL INFECTION
     Dosage: 1 G, TID
     Route: 041
     Dates: start: 20131202
  33. ZOVIRAX [Suspect]
     Indication: PROPHYLAXIS
     Dosage: 250 MG, QD
     Route: 041
     Dates: start: 20131201, end: 20131202
  34. ZOVIRAX [Suspect]
     Dosage: 250 MG, QD
     Route: 041
     Dates: start: 20131201, end: 20131201
  35. ZOVIRAX [Suspect]
     Dosage: 250 MG, BID
     Route: 041
     Dates: start: 20131202, end: 20131202
  36. ATORVASTATIN [Suspect]
     Indication: HYPERLIPIDAEMIA
     Dosage: 20 MG, QD
     Route: 048
     Dates: start: 20131118, end: 20131118
  37. ASPIRIN [Suspect]
     Indication: PROPHYLAXIS
     Dosage: 100 MG, QD
     Route: 048
     Dates: start: 20131118, end: 20131122
  38. FLAMON [Suspect]
     Indication: ESSENTIAL HYPERTENSION
     Dosage: 120 MG, BID
     Route: 048
     Dates: start: 20131118, end: 20131202
  39. FLAMON [Suspect]
     Dosage: 120 MG, BID
     Route: 048
     Dates: start: 20131118, end: 20131127
  40. FLAMON [Suspect]
     Dosage: 120 MG, TID
     Route: 048
     Dates: start: 20131128, end: 20131202
  41. TRIATEC (RAMIPRIL) [Suspect]
     Indication: ESSENTIAL HYPERTENSION
     Dosage: 2.5 MG, QD
     Route: 048
     Dates: start: 20131122
  42. TRIATEC (RAMIPRIL) [Suspect]
     Dosage: 2.5 MG, ONCE
     Route: 048
     Dates: start: 20131122, end: 20131122
  43. TRIATEC (RAMIPRIL) [Suspect]
     Dosage: ALTERNATE 1X OR 2X PER DAY
     Route: 048
     Dates: start: 20131201
  44. SOLU-CORTEF [Suspect]
     Indication: PROPHYLAXIS
     Dosage: 100 MG, QD
     Route: 041
     Dates: start: 20131128, end: 20131128
  45. TAZOBAC [Suspect]
     Indication: BACTERIAL INFECTION
     Dosage: 4.5 G, TID
     Route: 041
     Dates: start: 20131129, end: 20131201
  46. TRANDATE [Suspect]
     Indication: ESSENTIAL HYPERTENSION
     Dosage: 200 MG, 2 TOTAL
     Route: 041
     Dates: start: 20131201, end: 20131203
  47. TAVEGYL [Concomitant]
  48. FORTECORTIN [Concomitant]
  49. HEPARIN [Concomitant]
  50. PASPERTIN [Concomitant]
  51. FLATULEX DROPS [Concomitant]
  52. DUSPATALIN [Concomitant]
  53. LAXOBERON [Concomitant]
  54. LEUCOVORIN [Concomitant]
  55. URSOFALK [Concomitant]
  56. DEFIBROTIDE [Concomitant]

REACTIONS (4)
  - Jaundice [Recovering/Resolving]
  - Blood bilirubin increased [Recovering/Resolving]
  - Haemolysis [Unknown]
  - Hepatic enzyme increased [Recovering/Resolving]
